FAERS Safety Report 11867796 (Version 3)
Quarter: 2016Q2

REPORT INFORMATION
  Report Type: Spontaneous
  Country: FR (occurrence: FR)
  Receive Date: 20151224
  Receipt Date: 20160412
  Transmission Date: 20160815
  Serious: Yes (Other)
  Sender: FDA-Public Use
  Company Number: FR-ARIAD PHARMACEUTICALS, INC-2015FR005895

PATIENT
  Sex: Female
  Weight: 52.15 kg

DRUGS (19)
  1. DAUNORUBICIN [Concomitant]
     Active Substance: DAUNORUBICIN
     Indication: ACUTE MYELOID LEUKAEMIA (IN REMISSION)
     Dosage: 180 MG/M2, UNK
  2. CYCLOSPORINE. [Concomitant]
     Active Substance: CYCLOSPORINE
     Indication: PRODUCT USED FOR UNKNOWN INDICATION
  3. ICLUSIG [Suspect]
     Active Substance: PONATINIB
     Indication: ACUTE MYELOID LEUKAEMIA RECURRENT
     Dosage: 45 MG, QD
     Route: 048
     Dates: end: 201404
  4. AMIKLIN [Concomitant]
     Active Substance: AMIKACIN SULFATE
     Indication: PRODUCT USED FOR UNKNOWN INDICATION
  5. VFEND [Concomitant]
     Active Substance: VORICONAZOLE
     Indication: PRODUCT USED FOR UNKNOWN INDICATION
  6. CYTARABINE. [Concomitant]
     Active Substance: CYTARABINE
     Indication: ACUTE MYELOID LEUKAEMIA RECURRENT
     Dosage: UNK
  7. CLOFARABINE [Concomitant]
     Active Substance: CLOFARABINE
     Indication: ACUTE MYELOID LEUKAEMIA RECURRENT
     Dosage: 200 MG/M2, UNK
  8. ATARAX [Concomitant]
     Active Substance: HYDROXYZINE\HYDROXYZINE HYDROCHLORIDE
     Indication: PRODUCT USED FOR UNKNOWN INDICATION
  9. VANCOMYCINE [Concomitant]
     Active Substance: VANCOMYCIN
     Indication: PRODUCT USED FOR UNKNOWN INDICATION
  10. URSOLVAN [Concomitant]
     Active Substance: URSODIOL
     Indication: PRODUCT USED FOR UNKNOWN INDICATION
  11. PIPERACILLIN [Concomitant]
     Active Substance: PIPERACILLIN
     Indication: PRODUCT USED FOR UNKNOWN INDICATION
  12. RANITIDINE. [Concomitant]
     Active Substance: RANITIDINE
     Indication: ABDOMINAL PAIN UPPER
  13. VORICONAZOLE. [Concomitant]
     Active Substance: VORICONAZOLE
     Indication: PRODUCT USED FOR UNKNOWN INDICATION
  14. ARACYTINE [Concomitant]
     Active Substance: CYTARABINE
     Indication: PRODUCT USED FOR UNKNOWN INDICATION
  15. ICLUSIG [Suspect]
     Active Substance: PONATINIB
     Dosage: 45 MG, QD
     Route: 048
     Dates: start: 20140614, end: 20140710
  16. CASPOFUNGINE [Concomitant]
     Indication: PRODUCT USED FOR UNKNOWN INDICATION
  17. CHIBRO-CADRON [Concomitant]
     Active Substance: DEXAMETHASONE\NEOMYCIN SULFATE
     Indication: PRODUCT USED FOR UNKNOWN INDICATION
  18. TAZOCILLINE [Concomitant]
     Active Substance: PIPERACILLIN SODIUM\TAZOBACTAM SODIUM
     Indication: PRODUCT USED FOR UNKNOWN INDICATION
  19. AMBISONE [Concomitant]
     Active Substance: AMPHOTERICIN B
     Indication: PRODUCT USED FOR UNKNOWN INDICATION

REACTIONS (17)
  - Neuropathy peripheral [Unknown]
  - Klebsiella infection [Unknown]
  - Herpes zoster [Unknown]
  - Ear infection staphylococcal [Unknown]
  - Arthralgia [Recovered/Resolved]
  - Platelet count decreased [Recovered/Resolved]
  - Ovarian failure [Unknown]
  - Bone marrow failure [Recovered/Resolved with Sequelae]
  - Lupus-like syndrome [Unknown]
  - Headache [Recovered/Resolved]
  - Mucosal inflammation [Unknown]
  - Pain in jaw [Recovered/Resolved]
  - Rash maculo-papular [Recovered/Resolved]
  - Off label use [Recovered/Resolved]
  - Sepsis [Unknown]
  - Capillary leak syndrome [Unknown]
  - Graft versus host disease [Recovered/Resolved]

NARRATIVE: CASE EVENT DATE: 201310
